FAERS Safety Report 4889300-9 (Version None)
Quarter: 2006Q1

REPORT INFORMATION
  Report Type: 
  Country: None (occurrence: None)
  Receive Date: 20060120
  Receipt Date: 20060120
  Transmission Date: 20060701
  Serious: No
  Sender: FDA-Public Use
  Company Number: None

PATIENT
  Age: 51 Year
  Sex: Male
  Weight: 95 kg

DRUGS (1)
  1. AMPHOTERICIN B [Suspect]
     Dosage: 450 MG IV Q DAY
     Route: 042
     Dates: start: 20051013, end: 20051016

REACTIONS (1)
  - DYSPNOEA [None]
